FAERS Safety Report 14779225 (Version 1)
Quarter: 2018Q2

REPORT INFORMATION
  Report Type: Report from Study
  Country: FR (occurrence: FR)
  Receive Date: 20180419
  Receipt Date: 20180419
  Transmission Date: 20180711
  Serious: Yes (Death, Life-Threatening, Hospitalization, Other)
  Sender: FDA-Public Use
  Company Number: FR-ROCHE-2106382

PATIENT

DRUGS (2)
  1. RITUXIMAB. [Suspect]
     Active Substance: RITUXIMAB
     Indication: AUTOIMMUNE DISORDER
  2. RITUXIMAB. [Suspect]
     Active Substance: RITUXIMAB
     Indication: HAEMATOLOGICAL MALIGNANCY
     Route: 042

REACTIONS (31)
  - Cellulitis gangrenous [Fatal]
  - Central nervous system infection [Unknown]
  - Upper respiratory tract infection [Unknown]
  - Febrile neutropenia [Fatal]
  - Urosepsis [Fatal]
  - Lower respiratory tract infection [Unknown]
  - Systemic candida [Unknown]
  - Sepsis [Fatal]
  - Oesophagitis [Unknown]
  - Septic shock [Unknown]
  - Cerebral haemorrhage [Fatal]
  - Osteomyelitis [Unknown]
  - Arthritis infective [Unknown]
  - Soft tissue infection [Unknown]
  - Oesophageal candidiasis [Unknown]
  - Neutropenia [Unknown]
  - Infusion related reaction [Unknown]
  - Influenza like illness [Unknown]
  - Colitis [Fatal]
  - Skin infection [Unknown]
  - Bronchopulmonary aspergillosis [Unknown]
  - Herpes zoster [Unknown]
  - Gastrointestinal infection [Unknown]
  - Atypical mycobacterial infection [Unknown]
  - Pneumocystis jirovecii pneumonia [Unknown]
  - Cytomegalovirus infection [Unknown]
  - Dacryocystitis [Unknown]
  - Hypogammaglobulinaemia [Unknown]
  - Biliary tract infection [Unknown]
  - Urinary tract infection [Unknown]
  - Pneumonia [Unknown]
